FAERS Safety Report 18061660 (Version 11)
Quarter: 2021Q1

REPORT INFORMATION
  Report Type: Spontaneous
  Country: US (occurrence: US)
  Receive Date: 20200723
  Receipt Date: 20210226
  Transmission Date: 20210419
  Serious: Yes (Death, Hospitalization, Other)
  Sender: FDA-Public Use
  Company Number: US-GLAXOSMITHKLINE-US2020AMR138617

PATIENT
  Sex: Female

DRUGS (7)
  1. ZEJULA [Suspect]
     Active Substance: NIRAPARIB
     Dosage: 200 MG, QD
     Dates: start: 20200709
  2. ZEJULA [Suspect]
     Active Substance: NIRAPARIB
     Dosage: 200 MG
  3. ZEJULA [Suspect]
     Active Substance: NIRAPARIB
     Dosage: 2 DF (100 MG CAPSULE)
  4. ZEJULA [Suspect]
     Active Substance: NIRAPARIB
     Indication: OVARIAN CANCER
     Dosage: 200 MG, QD
     Dates: start: 20200708
  5. ZEJULA [Suspect]
     Active Substance: NIRAPARIB
     Dosage: 100 MG
  6. ZEJULA [Suspect]
     Active Substance: NIRAPARIB
     Dosage: 200 MG, QD
     Dates: start: 20200709
  7. ZEJULA [Suspect]
     Active Substance: NIRAPARIB
     Dosage: 200 MG, QD

REACTIONS (15)
  - Small intestinal obstruction [Unknown]
  - Vomiting [Unknown]
  - Abdominal pain upper [Unknown]
  - Infection [Unknown]
  - Blood sodium decreased [Unknown]
  - Constipation [Unknown]
  - Vesical fistula [Unknown]
  - Hospitalisation [Unknown]
  - Epistaxis [Unknown]
  - Death [Fatal]
  - Nausea [Unknown]
  - Product dose omission issue [Unknown]
  - Urinary tract infection [Unknown]
  - Weight decreased [Unknown]
  - Urinary incontinence [Unknown]
